FAERS Safety Report 5824233-2 (Version None)
Quarter: 2008Q3

REPORT INFORMATION
  Report Type: 
  Country: None (occurrence: None)
  Receive Date: 20080721
  Receipt Date: 20080709
  Transmission Date: 20090109
  Serious: Yes (Hospitalization)
  Sender: FDA-Public Use
  Company Number: 114-21880-08070014

PATIENT
  Age: 50 Year
  Sex: Male
  Weight: 53 kg

DRUGS (6)
  1. REVLIMID [Suspect]
     Indication: MULTIPLE MYELOMA
     Dosage: 10 MG,  ORAL;  5 MG, ORAL
     Route: 048
     Dates: start: 20080415, end: 20080429
  2. REVLIMID [Suspect]
     Indication: MULTIPLE MYELOMA
     Dosage: 10 MG,  ORAL;  5 MG, ORAL
     Route: 048
     Dates: start: 20080708
  3. BROXIL (PHENETICILLIN POTASSIUM) (250 MILLIGRAM) [Concomitant]
  4. OSTAC (CLODRONATE DISODIUM)(520 MILLIGRAM) [Concomitant]
  5. CELLCEPT (MYCOPHENOLATE MOFETIL) (1000 MILLIGRAM) [Concomitant]
  6. CICLOSPORIN  (CICLOSPORIN)(250 MILLIGRAM) [Concomitant]

REACTIONS (3)
  - ACUTE GRAFT VERSUS HOST DISEASE IN SKIN [None]
  - PYREXIA [None]
  - RASH [None]
